FAERS Safety Report 9302647 (Version 1)
Quarter: 2013Q2

REPORT INFORMATION
  Report Type: Spontaneous
  Country: US (occurrence: None)
  Receive Date: 20130517
  Receipt Date: 20130517
  Transmission Date: 20140414
  Serious: Yes (Hospitalization)
  Sender: FDA-Public Use
  Company Number: QSC-2013-0131

PATIENT
  Age: 9 Month
  Sex: Male

DRUGS (1)
  1. H.P. ACTHAR GEL (ADRENOCORTICOTROPIC HORMONE) GEL FOR INJECTION, 80U/ML [Suspect]
     Dosage: 75 UNITS/M2, FOR 2 WKS
     Dates: start: 2013, end: 2013

REACTIONS (3)
  - Ventricular extrasystoles [None]
  - Ventricular tachycardia [None]
  - Hypertension [None]
